FAERS Safety Report 9234012 (Version 2)
Quarter: 2013Q2

REPORT INFORMATION
  Report Type: Spontaneous
  Country: US (occurrence: US)
  Receive Date: 20130416
  Receipt Date: 20130426
  Transmission Date: 20140414
  Serious: No
  Sender: FDA-Public Use
  Company Number: US-PFIZER INC-2013116380

PATIENT
  Sex: Female

DRUGS (3)
  1. ADVIL [Suspect]
     Indication: PAIN
     Dosage: 200 MG (1 OR 2 TABLETS AT NIGHT), UNK
  2. ADVIL PM [Suspect]
     Dosage: UNK
     Dates: start: 2008
  3. ALEVE [Suspect]
     Dosage: UNK
     Dates: start: 2008

REACTIONS (2)
  - Abdominal discomfort [Recovered/Resolved]
  - Constipation [Recovered/Resolved]
